FAERS Safety Report 6889883-3 (Version None)
Quarter: 2010Q3

REPORT INFORMATION
  Report Type: 
  Country: None (occurrence: None)
  Receive Date: 20100730
  Receipt Date: 20080519
  Transmission Date: 20110219
  Serious: No
  Sender: FDA-Public Use
  Company Number: US-PFIZER INC-2008023101

PATIENT
  Sex: Female
  Weight: 77.3 kg

DRUGS (1)
  1. LIPITOR [Suspect]
     Indication: BLOOD CHOLESTEROL INCREASED
     Route: 048
     Dates: start: 20080425

REACTIONS (3)
  - BLOOD CHOLESTEROL INCREASED [None]
  - PRURITUS [None]
  - SENSATION OF HEAVINESS [None]
